FAERS Safety Report 17129781 (Version 1)
Quarter: 2019Q4

REPORT INFORMATION
  Report Type: Spontaneous
  Country: US (occurrence: US)
  Receive Date: 20191209
  Receipt Date: 20191209
  Transmission Date: 20200122
  Serious: Yes (Other)
  Sender: FDA-Public Use
  Company Number: US-BAYER-2019-219137

PATIENT

DRUGS (1)
  1. ALEVE [Suspect]
     Active Substance: NAPROXEN SODIUM
     Dosage: 1-2 TABLETS, QD
     Dates: start: 1999

REACTIONS (3)
  - Barrett^s oesophagus [None]
  - Abdominal pain upper [None]
  - Gastric ulcer [None]

NARRATIVE: CASE EVENT DATE: 2015
